APPROVED DRUG PRODUCT: RANITIDINE HYDROCHLORIDE
Active Ingredient: RANITIDINE HYDROCHLORIDE
Strength: EQ 25MG BASE/ML
Dosage Form/Route: INJECTABLE;INJECTION
Application: A079076 | Product #001
Applicant: MYLAN LABORATORIES LTD
Approved: Jun 9, 2016 | RLD: No | RS: No | Type: DISCN